FAERS Safety Report 8595260-X (Version None)
Quarter: 2012Q3

REPORT INFORMATION
  Report Type: 
  Country: None (occurrence: None)
  Receive Date: 20120815
  Receipt Date: 20120813
  Transmission Date: 20120928
  Serious: Yes (Other)
  Sender: FDA-Public Use
  Company Number: US-TEVA-347765USA

PATIENT
  Sex: Male

DRUGS (3)
  1. CLARAVIS [Suspect]
     Route: 048
  2. ZOLOFT [Concomitant]
  3. CLARITIN [Concomitant]

REACTIONS (2)
  - MOOD SWINGS [None]
  - SUICIDAL IDEATION [None]
